FAERS Safety Report 20374271 (Version 1)
Quarter: 2022Q1

REPORT INFORMATION
  Report Type: Spontaneous
  Country: US (occurrence: None)
  Receive Date: 20220124
  Receipt Date: 20220124
  Transmission Date: 20220423
  Serious: Yes (Other)
  Sender: FDA-Public Use
  Company Number: None

PATIENT
  Age: 57 Year
  Sex: Female
  Weight: 103.05 kg

DRUGS (3)
  1. PRIVIGEN [Suspect]
     Active Substance: HUMAN IMMUNOGLOBULIN G
     Indication: Dermatomyositis
     Dosage: OTHER FREQUENCY : DIVIDED OVER 3 DAY;?
     Route: 041
     Dates: start: 20220118, end: 20220119
  2. PRIVIGEN [Suspect]
     Active Substance: HUMAN IMMUNOGLOBULIN G
     Indication: Dermatomyositis
     Dosage: OTHER FREQUENCY : DIVIDED OVER 3 DAY;?
     Route: 041
     Dates: start: 20220118, end: 20220119
  3. Privigen   IVIG [Concomitant]
     Dates: start: 20220118, end: 20220119

REACTIONS (6)
  - Headache [None]
  - Nausea [None]
  - Vomiting [None]
  - Hypertension [None]
  - Chest discomfort [None]
  - Dyspnoea [None]

NARRATIVE: CASE EVENT DATE: 20220119
